FAERS Safety Report 23047856 (Version 2)
Quarter: 2023Q4

REPORT INFORMATION
  Report Type: Spontaneous
  Country: US (occurrence: US)
  Receive Date: 20231010
  Receipt Date: 20231105
  Transmission Date: 20240110
  Serious: No
  Sender: FDA-Public Use
  Company Number: US-GSK-US2023135031

PATIENT
  Age: 66 Year
  Sex: Male

DRUGS (2)
  1. TRELEGY ELLIPTA [Suspect]
     Active Substance: FLUTICASONE FUROATE\UMECLIDINIUM BROMIDE\VILANTEROL TRIFENATATE
     Indication: Chronic obstructive pulmonary disease
     Dosage: 1 PUFF(S), QD 100/325/25 MCG
     Route: 055
  2. GABAPENTIN [Concomitant]
     Active Substance: GABAPENTIN
     Indication: Blood pressure measurement
     Dosage: UNK

REACTIONS (3)
  - Dyspnoea [Unknown]
  - Product use issue [Unknown]
  - Product dose omission issue [Unknown]

NARRATIVE: CASE EVENT DATE: 20231001
